FAERS Safety Report 9347305 (Version 1)
Quarter: 2013Q2

REPORT INFORMATION
  Report Type: Spontaneous
  Country: US (occurrence: US)
  Receive Date: 20130613
  Receipt Date: 20130613
  Transmission Date: 20140414
  Serious: Yes (Hospitalization, Other)
  Sender: FDA-Public Use
  Company Number: US-BAXTER-2013BAX020584

PATIENT
  Sex: Female

DRUGS (2)
  1. DIANEAL LOW CALCIUM [Suspect]
     Indication: PERITONEAL DIALYSIS
     Route: 033
  2. EXTRANEAL [Suspect]
     Indication: PERITONEAL DIALYSIS
     Route: 033

REACTIONS (6)
  - Coronary artery occlusion [Unknown]
  - Bronchitis [Unknown]
  - Diabetes mellitus [Unknown]
  - Peritoneal dialysis complication [Recovered/Resolved]
  - Hypertension [Unknown]
  - Muscle spasms [Recovered/Resolved]
